FAERS Safety Report 9052558 (Version 1)
Quarter: 2013Q1

REPORT INFORMATION
  Report Type: Spontaneous
  Country: US (occurrence: US)
  Receive Date: 20130207
  Receipt Date: 20130207
  Transmission Date: 20140127
  Serious: Yes (Hospitalization)
  Sender: FDA-Public Use
  Company Number: PHEH2013US002959

PATIENT
  Sex: Female

DRUGS (2)
  1. EXFORGE [Suspect]
  2. JANUMET [Suspect]

REACTIONS (1)
  - Gastric disorder [Unknown]
